FAERS Safety Report 9571364 (Version 1)
Quarter: 2013Q4

REPORT INFORMATION
  Report Type: Spontaneous
  Country: BR (occurrence: BR)
  Receive Date: 20131001
  Receipt Date: 20131001
  Transmission Date: 20140711
  Serious: Yes (Hospitalization, Other)
  Sender: FDA-Public Use
  Company Number: BR-JNJFOC-20130914874

PATIENT
  Age: 76 Year
  Sex: Female
  Weight: 56 kg

DRUGS (12)
  1. REMICADE [Suspect]
     Indication: ANKYLOSING SPONDYLITIS
     Route: 042
     Dates: start: 201308
  2. REMICADE [Suspect]
     Indication: ANKYLOSING SPONDYLITIS
     Dosage: MARCH OR APRIL 2013
     Route: 042
     Dates: start: 2013
  3. REMICADE [Suspect]
     Indication: ANKYLOSING SPONDYLITIS
     Route: 042
     Dates: start: 2008, end: 2012
  4. OTHER DRUGS (UNSPECIFIED) [Interacting]
     Indication: PRODUCT USED FOR UNKNOWN INDICATION
     Route: 065
  5. OMEPRAZOLE [Concomitant]
     Indication: GASTROINTESTINAL DISORDER THERAPY
     Route: 065
  6. ACETYLSALICYLIC ACID [Concomitant]
     Indication: COAGULOPATHY
     Route: 065
  7. PRAVASTATIN [Concomitant]
     Route: 065
  8. ENALAPRIL [Concomitant]
     Route: 065
  9. SELOZOK [Concomitant]
     Route: 065
  10. MAREVAN [Concomitant]
     Indication: COAGULOPATHY
     Route: 065
  11. BENICAR [Concomitant]
     Route: 065
  12. NEBILET [Concomitant]
     Route: 065

REACTIONS (4)
  - Heart valve operation [Recovered/Resolved]
  - Drug interaction [Unknown]
  - Ankylosing spondylitis [Not Recovered/Not Resolved]
  - Therapeutic response decreased [Not Recovered/Not Resolved]
